FAERS Safety Report 9636076 (Version 3)
Quarter: 2013Q4

REPORT INFORMATION
  Report Type: Spontaneous
  Country: BR (occurrence: BR)
  Receive Date: 20131021
  Receipt Date: 20131029
  Transmission Date: 20140711
  Serious: Yes (Hospitalization, Disabling, Other)
  Sender: FDA-Public Use
  Company Number: BR-ABBVIE-13P-020-1158556-00

PATIENT
  Age: 50 Year
  Sex: Male

DRUGS (5)
  1. NORVIR [Suspect]
     Indication: HIV INFECTION
     Dosage: 1 CAPSULE AT NIGHT
     Route: 048
     Dates: end: 2005
  2. NORVIR [Suspect]
  3. ATAZANAVIR SULFATE [Suspect]
     Indication: HIV INFECTION
     Route: 048
  4. BIOVIR [Suspect]
     Indication: HIV INFECTION
     Dosage: FORM STRENGTH: 150 MILLIGRAMS OF LAMIVUDINE AND 300 MILLIGRAMS OF ZIDOVUDINE
     Route: 048
  5. ESTOPRIM (?) [Suspect]
     Indication: PRODUCT USED FOR UNKNOWN INDICATION
     Dates: end: 2005

REACTIONS (28)
  - Drug-induced liver injury [Not Recovered/Not Resolved]
  - Meningitis [Recovering/Resolving]
  - Insomnia [Not Recovered/Not Resolved]
  - Gastric pH decreased [Not Recovered/Not Resolved]
  - Abdominal pain upper [Not Recovered/Not Resolved]
  - Premature ageing [Not Recovered/Not Resolved]
  - Lipodystrophy acquired [Not Recovered/Not Resolved]
  - Pollakiuria [Not Recovered/Not Resolved]
  - Headache [Recovered/Resolved]
  - Mobility decreased [Not Recovered/Not Resolved]
  - Memory impairment [Not Recovered/Not Resolved]
  - Fatigue [Not Recovered/Not Resolved]
  - Lid sulcus deepened [Not Recovered/Not Resolved]
  - Diarrhoea [Not Recovered/Not Resolved]
  - Weight decreased [Recovering/Resolving]
  - Decreased appetite [Not Recovered/Not Resolved]
  - Nausea [Recovered/Resolved]
  - Abnormal dreams [Recovered/Resolved]
  - Loss of libido [Not Recovered/Not Resolved]
  - Tinnitus [Not Recovered/Not Resolved]
  - Painful ejaculation [Not Recovered/Not Resolved]
  - Premature ejaculation [Not Recovered/Not Resolved]
  - Unevaluable event [Not Recovered/Not Resolved]
  - Liver disorder [Not Recovered/Not Resolved]
  - Erectile dysfunction [Unknown]
  - Tinnitus [Unknown]
  - General physical health deterioration [Unknown]
  - Sexual dysfunction [Unknown]
